FAERS Safety Report 12184831 (Version 2)
Quarter: 2016Q4

REPORT INFORMATION
  Report Type: Spontaneous
  Country: US (occurrence: US)
  Receive Date: 20160316
  Receipt Date: 20161018
  Transmission Date: 20170207
  Serious: No
  Sender: FDA-Public Use
  Company Number: US-BAYER-2016-049947

PATIENT
  Age: 88 Year
  Sex: Male
  Weight: 86 kg

DRUGS (2)
  1. MIRALAX [Suspect]
     Active Substance: POLYETHYLENE GLYCOL 3350
     Indication: CONSTIPATION
     Dosage: 1 DF, BID
     Route: 048
     Dates: start: 20160311
  2. MIRALAX [Suspect]
     Active Substance: POLYETHYLENE GLYCOL 3350
     Indication: INTESTINAL OBSTRUCTION
     Dosage: 1 DF, QD
     Route: 048
     Dates: start: 20161004

REACTIONS (2)
  - Circumstance or information capable of leading to medication error [None]
  - Product use issue [None]

NARRATIVE: CASE EVENT DATE: 20160311
